FAERS Safety Report 11629075 (Version 1)
Quarter: 2015Q4

REPORT INFORMATION
  Report Type: Spontaneous
  Country: US (occurrence: None)
  Receive Date: 20151014
  Receipt Date: 20151014
  Transmission Date: 20160304
  Serious: No
  Sender: FDA-Public Use
  Company Number: US-MDT-ADR-2015-01953

PATIENT
  Age: 50 Year
  Sex: Male

DRUGS (1)
  1. COMPOOUNDED BACLOFEN INTRATHECAL 250 MCG/ML [Suspect]
     Active Substance: BACLOFEN
     Dosage: 127 MCG/DAY

REACTIONS (1)
  - Muscle spasticity [None]
